FAERS Safety Report 6177659-4 (Version None)
Quarter: 2009Q2

REPORT INFORMATION
  Report Type: 
  Country: None (occurrence: None)
  Receive Date: 20090501
  Receipt Date: 20090501
  Transmission Date: 20091009
  Serious: Yes (Other)
  Sender: FDA-Public Use
  Company Number: None

PATIENT
  Age: 61 Year
  Sex: Male
  Weight: 124.7392 kg

DRUGS (2)
  1. WELCHOL [Suspect]
     Indication: BLOOD CHOLESTEROL
     Dosage: 6 TABLETS DAILY 3 TWICE A DAY PO
     Route: 048
     Dates: start: 20080928, end: 20081011
  2. NIASPAN [Suspect]
     Indication: BLOOD CHOLESTEROL
     Dosage: 1 TABLET DAILY ONCE A DAY PO
     Route: 048
     Dates: start: 20080811, end: 20081011

REACTIONS (14)
  - ABDOMINAL DISTENSION [None]
  - ASTHENIA [None]
  - BONE PAIN [None]
  - CONSTIPATION [None]
  - DIARRHOEA [None]
  - FEELING ABNORMAL [None]
  - GASTROINTESTINAL DISORDER [None]
  - INTESTINAL OBSTRUCTION [None]
  - JOINT RANGE OF MOTION DECREASED [None]
  - MALAISE [None]
  - MOVEMENT DISORDER [None]
  - NAUSEA [None]
  - PAIN IN EXTREMITY [None]
  - VOMITING [None]
